FAERS Safety Report 7196005-0 (Version None)
Quarter: 2010Q4

REPORT INFORMATION
  Report Type: 
  Country: None (occurrence: None)
  Receive Date: 20101223
  Receipt Date: 20101013
  Transmission Date: 20110411
  Serious: No
  Sender: FDA-Public Use
  Company Number: US-AMGEN-KDL445125

PATIENT

DRUGS (18)
  1. ENBREL [Suspect]
     Indication: RHEUMATOID ARTHRITIS
     Dosage: 50 MG, QWK
     Route: 058
     Dates: start: 20100911
  2. ENBREL [Suspect]
     Indication: PSORIATIC ARTHROPATHY
  3. METHOTREXATE [Concomitant]
  4. PREDNISONE [Concomitant]
  5. BENICAR [Concomitant]
  6. NORVASC [Concomitant]
  7. DARVOCET-N 100 [Concomitant]
  8. EFFEXOR [Concomitant]
  9. FERREX [Concomitant]
  10. NEXIUM [Concomitant]
  11. ZETIA [Concomitant]
  12. VITAMIN B12                        /00056201/ [Concomitant]
  13. PROVENTIL                          /00139501/ [Concomitant]
  14. SYMBICORT [Concomitant]
  15. PREVACID [Concomitant]
  16. METANX [Concomitant]
  17. FISH OIL [Concomitant]
  18. TRAMADOL [Suspect]

REACTIONS (4)
  - FATIGUE [None]
  - NAUSEA [None]
  - PAIN [None]
  - TREMOR [None]
